FAERS Safety Report 24160032 (Version 1)
Quarter: 2024Q3

REPORT INFORMATION
  Report Type: Spontaneous
  Country: ID (occurrence: ID)
  Receive Date: 20240801
  Receipt Date: 20240801
  Transmission Date: 20241016
  Serious: Yes (Death, Other)
  Sender: STRIDES
  Company Number: None

PATIENT
  Age: 42 Year
  Sex: Male

DRUGS (24)
  1. MYCOPHENOLATE MOFETIL [Interacting]
     Active Substance: MYCOPHENOLATE MOFETIL
     Indication: Immunosuppressant drug therapy
     Dosage: UNK, MAINTENANCE THERAPY
     Route: 065
     Dates: start: 2020, end: 2020
  2. MYCOPHENOLATE MOFETIL [Interacting]
     Active Substance: MYCOPHENOLATE MOFETIL
     Indication: Renal transplant
  3. TACROLIMUS [Interacting]
     Active Substance: TACROLIMUS
     Indication: Immunosuppressant drug therapy
     Dosage: 0.06 MILLIGRAM/KILOGRAM (INDUCTION)
     Route: 065
     Dates: start: 2020, end: 2020
  4. TACROLIMUS [Interacting]
     Active Substance: TACROLIMUS
     Indication: Renal transplant
     Dosage: UNK (MAINTAINED)
     Route: 065
     Dates: start: 2020, end: 2020
  5. TACROLIMUS [Interacting]
     Active Substance: TACROLIMUS
     Dosage: 2 MILLIGRAM, EVERY 12 HRS (BID)
     Route: 065
     Dates: start: 2020, end: 2020
  6. TACROLIMUS [Interacting]
     Active Substance: TACROLIMUS
     Dosage: 2 MILLIGRAM, QD (AT 1ST MONTH AFTER ATT)
     Route: 065
     Dates: start: 2021
  7. BASILIXIMAB [Suspect]
     Active Substance: BASILIXIMAB
     Indication: Immunosuppressant drug therapy
     Dosage: 20 MILLIGRAM (INDUCTION)
     Route: 065
     Dates: start: 2020, end: 2020
  8. BASILIXIMAB [Suspect]
     Active Substance: BASILIXIMAB
     Indication: Renal transplant
  9. METHYLPREDNISOLONE [Interacting]
     Active Substance: METHYLPREDNISOLONE
     Indication: Immunosuppressant drug therapy
     Dosage: 125 MILLIGRAM (INDUCTION)
     Route: 042
     Dates: start: 2020, end: 2020
  10. METHYLPREDNISOLONE [Interacting]
     Active Substance: METHYLPREDNISOLONE
     Indication: Renal transplant
     Dosage: UNK (MAINTAINED)
     Route: 065
     Dates: start: 2020, end: 2020
  11. METHYLPREDNISOLONE [Interacting]
     Active Substance: METHYLPREDNISOLONE
     Dosage: 250 MILLIGRAM, EVERY 12 HRS (BID)
     Route: 042
     Dates: start: 2020, end: 2020
  12. METHYLPREDNISOLONE [Interacting]
     Active Substance: METHYLPREDNISOLONE
     Dosage: 16 MILLIGRAM, EVERY 12 HRS (BID)
     Route: 065
     Dates: start: 2020, end: 2020
  13. METHYLPREDNISOLONE [Interacting]
     Active Substance: METHYLPREDNISOLONE
     Dosage: 4 MILLIGRAM, QD (AT 1ST MONTH AFTER ATT: 4 MG/D TO 32 MG/D)
     Route: 065
     Dates: start: 2021
  14. METHYLPREDNISOLONE [Interacting]
     Active Substance: METHYLPREDNISOLONE
     Dosage: 32 MILLIGRAM, QD (AT 1ST MONTH AFTER ATT: 4 MG/D TO 32 MG/D)
     Route: 065
     Dates: start: 2021
  15. MYCOPHENOLIC ACID [Interacting]
     Active Substance: MYCOPHENOLIC ACID
     Indication: Renal transplant
     Dosage: 720 MILLIGRAM (INDUCTION)
     Route: 065
     Dates: start: 2020
  16. MYCOPHENOLIC ACID [Interacting]
     Active Substance: MYCOPHENOLIC ACID
     Indication: Immunosuppressant drug therapy
     Dosage: 360 UNK, EVERY 12 HRS (AT 1ST MONTH AFTER ATT: 360 MG Q12H TO 720 MG Q12H)
     Route: 065
  17. MYCOPHENOLIC ACID [Interacting]
     Active Substance: MYCOPHENOLIC ACID
     Dosage: 720 MILLIGRAM, EVERY 12 HRS (BID) (AT 1ST MONTH AFTER ATT: 360 MG Q12H TO 720 MG Q12H)
     Route: 065
  18. MYCOPHENOLIC ACID [Interacting]
     Active Substance: MYCOPHENOLIC ACID
     Dosage: 720 MILLIGRAM, BID
     Route: 065
  19. ISONIAZID [Interacting]
     Active Substance: ISONIAZID
     Indication: Disseminated tuberculosis
     Dosage: 300 MILLIGRAM
     Route: 065
     Dates: start: 2021
  20. RIFAMPIN [Interacting]
     Active Substance: RIFAMPIN
     Indication: Disseminated tuberculosis
     Dosage: 600 MILLIGRAM
     Route: 065
     Dates: start: 2021
  21. RIFAMPIN [Interacting]
     Active Substance: RIFAMPIN
     Dosage: UNK, DOSE REDUCED
     Route: 065
  22. PYRAZINAMIDE [Interacting]
     Active Substance: PYRAZINAMIDE
     Indication: Disseminated tuberculosis
     Dosage: 1500 MILLIGRAM
     Route: 065
     Dates: start: 2021
  23. ETHAMBUTOL [Interacting]
     Active Substance: ETHAMBUTOL HYDROCHLORIDE
     Indication: Disseminated tuberculosis
     Dosage: 750 MILLIGRAM
     Route: 065
     Dates: start: 2021
  24. LEVOFLOXACIN [Interacting]
     Active Substance: LEVOFLOXACIN
     Indication: Disseminated tuberculosis
     Dosage: 750 MILLIGRAM, QD
     Route: 065
     Dates: start: 2022

REACTIONS (8)
  - Death [Fatal]
  - Drug interaction [Unknown]
  - Cutaneous tuberculosis [Recovered/Resolved]
  - Pulmonary tuberculosis [Unknown]
  - Disseminated tuberculosis [Unknown]
  - Kidney transplant rejection [Unknown]
  - Immunosuppressant drug level decreased [Unknown]
  - Wound infection bacterial [Recovered/Resolved]

NARRATIVE: CASE EVENT DATE: 20210101
